FAERS Safety Report 6297797-5 (Version None)
Quarter: 2009Q3

REPORT INFORMATION
  Report Type: 
  Country: None (occurrence: None)
  Receive Date: 20090804
  Receipt Date: 20090804
  Transmission Date: 20100115
  Serious: Yes (Disabling)
  Sender: FDA-Public Use
  Company Number: None

PATIENT
  Age: 38 Year
  Sex: Female
  Weight: 61.2356 kg

DRUGS (2)
  1. CYMBALTA [Suspect]
     Indication: DEPRESSION
     Dosage: 80 MG, DAILY, PO; 4.5 YEARS
     Route: 048
  2. CYMBALTA [Suspect]
     Dosage: 5 MG, DAILY, PO
     Route: 048

REACTIONS (38)
  - ABNORMAL DREAMS [None]
  - ANXIETY [None]
  - ARTHRALGIA [None]
  - BACK PAIN [None]
  - CHILLS [None]
  - COGNITIVE DISORDER [None]
  - CRYING [None]
  - DISTURBANCE IN ATTENTION [None]
  - DRUG WITHDRAWAL SYNDROME [None]
  - EAR CONGESTION [None]
  - EYE MOVEMENT DISORDER [None]
  - FATIGUE [None]
  - GASTROINTESTINAL DISORDER [None]
  - HANGOVER [None]
  - HEAD LAG ABNORMAL [None]
  - HEART RATE INCREASED [None]
  - HYPERHIDROSIS [None]
  - HYPOAESTHESIA [None]
  - IMPAIRED WORK ABILITY [None]
  - INFLUENZA LIKE ILLNESS [None]
  - IRRITABILITY [None]
  - JOINT STIFFNESS [None]
  - LETHARGY [None]
  - MUSCULOSKELETAL STIFFNESS [None]
  - MYALGIA [None]
  - NASAL CONGESTION [None]
  - NAUSEA [None]
  - PAIN [None]
  - PARAESTHESIA [None]
  - PRURITUS [None]
  - RHINORRHOEA [None]
  - SINUS HEADACHE [None]
  - SINUSITIS [None]
  - SKIN ODOUR ABNORMAL [None]
  - UNEVALUABLE EVENT [None]
  - VISION BLURRED [None]
  - VISUAL IMPAIRMENT [None]
  - WRONG TECHNIQUE IN DRUG USAGE PROCESS [None]
